FAERS Safety Report 5087394-1 (Version None)
Quarter: 2006Q3

REPORT INFORMATION
  Report Type: 
  Country: None (occurrence: None)
  Receive Date: 20060822
  Receipt Date: 20060822
  Transmission Date: 20061208
  Serious: Yes (Hospitalization)
  Sender: FDA-Public Use
  Company Number: None

PATIENT
  Sex: Male
  Weight: 89.3586 kg

DRUGS (9)
  1. HYDROCHLOROTHIAZIDE [Suspect]
     Indication: HYPERTENSION
     Dosage: 25MG DAILY ORAL
     Route: 048
     Dates: start: 20031121, end: 20060603
  2. HYDROCHLOROTHIAZIDE [Concomitant]
  3. SIMVASTATIN [Concomitant]
  4. ALEVE [Concomitant]
  5. GUAIFENESIN [Concomitant]
  6. LEVOTHYROXINE SODIUM [Concomitant]
  7. LISINOPRIL [Concomitant]
  8. TERAZOSIN HCL [Concomitant]
  9. ASPIRIN [Concomitant]

REACTIONS (8)
  - ASTHENIA [None]
  - CONSTIPATION [None]
  - DIZZINESS [None]
  - HYPERVOLAEMIA [None]
  - HYPONATRAEMIA [None]
  - MUSCLE SPASMS [None]
  - PRODUCTIVE COUGH [None]
  - THERAPY NON-RESPONDER [None]
